FAERS Safety Report 12603875 (Version 1)
Quarter: 2016Q3

REPORT INFORMATION
  Report Type: Spontaneous
  Country: CO (occurrence: CO)
  Receive Date: 20160728
  Receipt Date: 20160728
  Transmission Date: 20161109
  Serious: Yes (Death)
  Sender: FDA-Public Use
  Company Number: CO-JNJFOC-20160723490

PATIENT
  Age: 66 Year
  Sex: Male

DRUGS (1)
  1. OLYSIO [Suspect]
     Active Substance: SIMEPREVIR
     Indication: HEPATITIS C
     Route: 048

REACTIONS (7)
  - Cardio-respiratory arrest [Fatal]
  - Asthenia [Unknown]
  - Hepatic cirrhosis [Unknown]
  - Lymphocytosis [Unknown]
  - Pancytopenia [Unknown]
  - Leukocytosis [Unknown]
  - Malaise [Unknown]

NARRATIVE: CASE EVENT DATE: 20160624
